FAERS Safety Report 23274837 (Version 1)
Quarter: 2023Q4

REPORT INFORMATION
  Report Type: Report from Study
  Country: US (occurrence: US)
  Receive Date: 20231208
  Receipt Date: 20231208
  Transmission Date: 20240110
  Serious: Yes (Death, Other)
  Sender: FDA-Public Use
  Company Number: US-ACADIA PHARMACEUTICALS INC.-ACA-2023-PIM-005490

PATIENT
  Age: 89 Year
  Sex: Male

DRUGS (17)
  1. NUPLAZID [Suspect]
     Active Substance: PIMAVANSERIN TARTRATE
     Indication: Parkinson^s disease psychosis
     Dosage: 34 MILLIGRAM, QD
     Route: 048
  2. TRAMADOL [Concomitant]
     Active Substance: TRAMADOL\TRAMADOL HYDROCHLORIDE
  3. TOLTERODINE [Concomitant]
     Active Substance: TOLTERODINE
  4. MIDODRINE [Concomitant]
     Active Substance: MIDODRINE
  5. TAMSULOSIN [Concomitant]
     Active Substance: TAMSULOSIN
  6. CELECOXIB [Concomitant]
     Active Substance: CELECOXIB
  7. LISINOPRIL [Concomitant]
     Active Substance: LISINOPRIL
  8. OMEPRAZOLE [Concomitant]
     Active Substance: OMEPRAZOLE
  9. CALCIUM CITRATE [Concomitant]
     Active Substance: CALCIUM CITRATE
  10. MIRALAX [Concomitant]
     Active Substance: POLYETHYLENE GLYCOL 3350
  11. ASPIRIN [Concomitant]
     Active Substance: ASPIRIN
  12. PROLIA [Concomitant]
     Active Substance: DENOSUMAB
  13. SENNA [Concomitant]
     Active Substance: SENNA LEAF\SENNOSIDES\SENNOSIDES A AND B
  14. RYTARY [Concomitant]
     Active Substance: CARBIDOPA\LEVODOPA
  15. GOCOVRI [Concomitant]
     Active Substance: AMANTADINE
  16. REMERON [Concomitant]
     Active Substance: MIRTAZAPINE
  17. IRON [Concomitant]
     Active Substance: IRON

REACTIONS (1)
  - Death [Fatal]

NARRATIVE: CASE EVENT DATE: 20231126
